FAERS Safety Report 21012389 (Version 1)
Quarter: 2022Q2

REPORT INFORMATION
  Report Type: Spontaneous
  Country: US (occurrence: US)
  Receive Date: 20220627
  Receipt Date: 20220627
  Transmission Date: 20220721
  Serious: Yes (Hospitalization, Other)
  Sender: FDA-Public Use
  Company Number: US-GW PHARMA-2022-US-020965

PATIENT
  Sex: Male
  Weight: 49.887 kg

DRUGS (1)
  1. EPIDIOLEX [Suspect]
     Active Substance: CANNABIDIOL
     Indication: Seizure
     Dosage: 1.4ML TWICE DAILY

REACTIONS (2)
  - Hepatomegaly [Unknown]
  - Clostridium difficile infection [Unknown]
